FAERS Safety Report 4338506-6 (Version None)
Quarter: 2004Q2

REPORT INFORMATION
  Report Type: 
  Country: None (occurrence: None)
  Receive Date: 20040414
  Receipt Date: 20040401
  Transmission Date: 20050107
  Serious: Yes (Hospitalization)
  Sender: FDA-Public Use
  Company Number: AU-GLAXOSMITHKLINE-B0329071A

PATIENT
  Sex: Male

DRUGS (2)
  1. ZYBAN [Suspect]
     Route: 048
  2. QUETIAPINE [Concomitant]

REACTIONS (3)
  - ANGER [None]
  - PSYCHOTIC DISORDER [None]
  - SUICIDE ATTEMPT [None]
